FAERS Safety Report 4892695-3 (Version None)
Quarter: 2006Q1

REPORT INFORMATION
  Report Type: 
  Country: None (occurrence: None)
  Receive Date: 20060125
  Receipt Date: 20060125
  Transmission Date: 20060701
  Serious: Yes (Hospitalization)
  Sender: FDA-Public Use
  Company Number: None

PATIENT
  Sex: Male

DRUGS (1)
  1. ASPIRIN [Suspect]
     Indication: INTENTIONAL OVERDOSE
     Dosage: ~ 150 TABS (325 MG EACH)
     Dates: start: 20050612

REACTIONS (4)
  - ANALGESIC DRUG LEVEL INCREASED [None]
  - INTENTIONAL OVERDOSE [None]
  - RESPIRATORY ALKALOSIS [None]
  - SUICIDE ATTEMPT [None]
